FAERS Safety Report 8233995 (Version 2)
Quarter: 2012Q4

REPORT INFORMATION
  Report Type: 
  Country: US (occurrence: US)
  Receive Date: 20111107
  Receipt Date: 20121023
  Transmission Date: 20130627
  Serious: No
  Sender: FDA-Public Use
  Company Number: US-AMGEN-USASP2011047104

PATIENT
  Age: 55 Year
  Sex: Male
  Weight: 99.77 kg

DRUGS (7)
  1. ENBREL [Suspect]
     Indication: RHEUMATOID ARTHRITIS
     Dosage: 50 mg, qwk
     Route: 058
     Dates: start: 20110811, end: 201110
  2. METHOTREXATE [Concomitant]
     Indication: RHEUMATOID ARTHRITIS
     Dosage: 25 mg, qd
     Route: 058
  3. PREDNISONE [Concomitant]
     Indication: RHEUMATOID ARTHRITIS
     Dosage: 20 mg, qd
     Route: 048
  4. LEXAPRO [Concomitant]
     Indication: AFFECTIVE DISORDER
     Dosage: 10 mg, qd
     Route: 048
  5. LEXAPRO [Concomitant]
     Indication: RHEUMATOID ARTHRITIS
  6. TRAZODONE [Concomitant]
     Indication: INSOMNIA
     Dosage: 150 mg, qd
     Route: 048
  7. IMURAN                             /00001501/ [Concomitant]
     Indication: RHEUMATOID ARTHRITIS
     Dosage: 150 mg, qd
     Route: 048

REACTIONS (2)
  - Contusion [Recovered/Resolved]
  - Drug ineffective [Not Recovered/Not Resolved]
